FAERS Safety Report 18398018 (Version 3)
Quarter: 2020Q4

REPORT INFORMATION
  Report Type: Report from Study
  Country: US (occurrence: US)
  Receive Date: 20201019
  Receipt Date: 20201130
  Transmission Date: 20210114
  Serious: Yes (Hospitalization)
  Sender: FDA-Public Use
  Company Number: US-SAREPTA THERAPEUTICS INC.-SRP2020-000915

PATIENT
  Age: 18 Year
  Sex: Male
  Weight: 74.9 kg

DRUGS (4)
  1. DEFLAZACORT [Concomitant]
     Active Substance: DEFLAZACORT
     Indication: DUCHENNE MUSCULAR DYSTROPHY
     Dosage: 36 MILLIGRAM, QD
     Route: 048
     Dates: start: 202006
  2. SPIRONOLACTONE. [Concomitant]
     Active Substance: SPIRONOLACTONE
     Indication: PRODUCT USED FOR UNKNOWN INDICATION
     Dosage: 50 MILLIGRAM, Q 12 HR
     Route: 048
  3. ENALAPRIL [Concomitant]
     Active Substance: ENALAPRIL
     Indication: DUCHENNE MUSCULAR DYSTROPHY
     Dosage: 10 MILLIGRAM, QD
     Route: 048
  4. ETEPLIRSEN [Suspect]
     Active Substance: ETEPLIRSEN
     Indication: PRODUCT USED FOR UNKNOWN INDICATION
     Dosage: 2300 MILLIGRAM, EVERY WEEK
     Route: 042

REACTIONS (4)
  - Bacteraemia [Recovered/Resolved]
  - Poor venous access [Unknown]
  - Product dose omission issue [Unknown]
  - Vascular device infection [Recovered/Resolved]

NARRATIVE: CASE EVENT DATE: 20201005
